FAERS Safety Report 11927460 (Version 3)
Quarter: 2016Q2

REPORT INFORMATION
  Report Type: Report from Study
  Country: JP (occurrence: JP)
  Receive Date: 20160119
  Receipt Date: 20160404
  Transmission Date: 20160815
  Serious: Yes (Hospitalization)
  Sender: FDA-Public Use
  Company Number: JP-OTSUKA-2016_001545

PATIENT
  Age: 81 Year
  Sex: Female
  Weight: 52 kg

DRUGS (6)
  1. *CLOPIDOGREL [Suspect]
     Active Substance: CLOPIDOGREL BISULFATE
     Indication: ISCHAEMIC STROKE
     Dosage: 75 MG, QD
     Route: 048
     Dates: end: 20151128
  2. STATIN [Concomitant]
     Active Substance: UNSPECIFIED INGREDIENT
     Indication: DYSLIPIDAEMIA
     Dosage: UNK
     Route: 048
  3. CILOSTAZOL. [Suspect]
     Active Substance: CILOSTAZOL
     Dosage: 100 MG, BID
     Route: 048
     Dates: start: 20151209
  4. CALCIUM CHANNEL BLOCKERS [Concomitant]
     Active Substance: UNSPECIFIED INGREDIENT
     Indication: HYPERTENSION
     Dosage: UNK
     Route: 048
  5. CILOSTAZOL. [Suspect]
     Active Substance: CILOSTAZOL
     Indication: ISCHAEMIC STROKE
     Dosage: 100 MG, BID
     Route: 048
     Dates: start: 20151113, end: 20151128
  6. *CLOPIDOGREL [Suspect]
     Active Substance: CLOPIDOGREL BISULFATE
     Dosage: 75 MG, QD
     Route: 048
     Dates: start: 20151209, end: 20151211

REACTIONS (1)
  - Gastric ulcer haemorrhage [Recovered/Resolved]

NARRATIVE: CASE EVENT DATE: 20151127
